FAERS Safety Report 11935401 (Version 1)
Quarter: 2016Q1

REPORT INFORMATION
  Report Type: Spontaneous
  Country: US (occurrence: US)
  Receive Date: 20160121
  Receipt Date: 20160121
  Transmission Date: 20160526
  Serious: No
  Sender: FDA-Public Use
  Company Number: US-OTSUKA-2015_016643

PATIENT
  Age: 16 Year
  Sex: Male

DRUGS (3)
  1. REXULTI [Suspect]
     Active Substance: BREXPIPRAZOLE
     Dosage: UNK
     Route: 048
     Dates: start: 201511
  2. REXULTI [Suspect]
     Active Substance: BREXPIPRAZOLE
     Dosage: 2 MG, QD
     Route: 048
  3. REXULTI [Suspect]
     Active Substance: BREXPIPRAZOLE
     Indication: DEPRESSION
     Dosage: 1 MG, QD FOR 2 WEEKS
     Route: 048
     Dates: start: 201501

REACTIONS (2)
  - Drug administered to patient of inappropriate age [Unknown]
  - No adverse event [Unknown]
